FAERS Safety Report 9429254 (Version 1)
Quarter: 2013Q3

REPORT INFORMATION
  Report Type: Spontaneous
  Country: US (occurrence: US)
  Receive Date: 20130730
  Receipt Date: 20130730
  Transmission Date: 20140515
  Serious: Yes (Disabling, Other)
  Sender: FDA-Public Use
  Company Number: US-PFIZER INC-2013218814

PATIENT
  Age: 53 Year
  Sex: Female
  Weight: 77.1 kg

DRUGS (7)
  1. CELEBREX [Suspect]
     Indication: ARTHRITIS
     Dosage: 200 MG, 2X/DAY
     Route: 048
     Dates: end: 201306
  2. CYMBALTA [Concomitant]
     Dosage: 60 MG, 1X/DAY
  3. NEURONTIN [Concomitant]
     Dosage: 300 MG, 1X/DAY
     Route: 048
  4. LEVOCETIRIZINE [Concomitant]
     Dosage: 5 MG, 1X/DAY
  5. PRAVASTATIN [Concomitant]
     Dosage: 20 MG, 1X/DAY
  6. TRIAMTERENE [Concomitant]
     Indication: HYPERTENSION
     Dosage: UNK
  7. PERINDOPRIL [Concomitant]
     Dosage: UNK

REACTIONS (2)
  - Road traffic accident [Unknown]
  - Back injury [Unknown]
